FAERS Safety Report 15339709 (Version 1)
Quarter: 2018Q4

REPORT INFORMATION
  Report Type: Spontaneous
  Country: FR (occurrence: FR)
  Receive Date: 20180831
  Receipt Date: 20180831
  Transmission Date: 20190204
  Serious: Yes (Hospitalization, Other)
  Sender: FDA-Public Use
  Company Number: FR-PFIZER INC-2018345435

PATIENT
  Age: 53 Year
  Sex: Male
  Weight: 62 kg

DRUGS (7)
  1. BACLOFENE [Suspect]
     Active Substance: BACLOFEN
     Indication: MUSCLE SPASTICITY
     Dosage: 40 MG, 1X/DAY
     Route: 048
     Dates: end: 20180713
  2. LOXAPAC [LOXAPINE SUCCINATE] [Suspect]
     Active Substance: LOXAPINE SUCCINATE
     Indication: PSYCHOTIC DISORDER
     Dosage: 30 GTT, 1X/DAY
     Route: 048
     Dates: end: 20180713
  3. TOVIAZ [Suspect]
     Active Substance: FESOTERODINE FUMARATE
     Indication: URINARY INCONTINENCE
     Dosage: 8 MG, 1X/DAY
     Route: 048
  4. BROMAZEPAM [Suspect]
     Active Substance: BROMAZEPAM
     Indication: ANXIETY DISORDER
     Dosage: 6 MG, 1X/DAY
     Route: 048
     Dates: end: 20180713
  5. XATRAL [ALFUZOSIN HYDROCHLORIDE] [Suspect]
     Active Substance: ALFUZOSIN
     Indication: BLADDER CANCER
     Dosage: 10 MG, 1X/DAY
     Route: 048
     Dates: end: 20180713
  6. STABLON [Suspect]
     Active Substance: TIANEPTINE
     Indication: DEPRESSION
     Dosage: 37.5 MG, 1X/DAY
     Route: 048
     Dates: end: 20180713
  7. DANTRIUM [Suspect]
     Active Substance: DANTROLENE SODIUM
     Indication: MUSCLE SPASTICITY
     Dosage: 75 MG, 1X/DAY
     Route: 048

REACTIONS (5)
  - Hypernatraemia [Recovered/Resolved]
  - Aspartate aminotransferase increased [Recovered/Resolved]
  - Blood creatine phosphokinase increased [Recovered/Resolved]
  - Pyrexia [Recovered/Resolved]
  - Rhabdomyoma [Recovered/Resolved]

NARRATIVE: CASE EVENT DATE: 20180709
